FAERS Safety Report 11307064 (Version 1)
Quarter: 2015Q3

REPORT INFORMATION
  Report Type: Spontaneous
  Country: CN (occurrence: CN)
  Receive Date: 20150723
  Receipt Date: 20150723
  Transmission Date: 20151125
  Serious: Yes (Other)
  Sender: FDA-Public Use
  Company Number: CN-WATSON-2015-12309

PATIENT
  Age: 52 Year
  Sex: Male

DRUGS (3)
  1. VANCOMYCIN (UNKNOWN) [Suspect]
     Active Substance: VANCOMYCIN
     Indication: STAPHYLOCOCCAL INFECTION
     Dosage: 1 G, BID
     Route: 065
  2. VANCOMYCIN (UNKNOWN) [Suspect]
     Active Substance: VANCOMYCIN
     Indication: SKIN INFECTION
     Dosage: UNK
     Route: 042
  3. CEFOPERAZONE [Suspect]
     Active Substance: CEFOPERAZONE
     Indication: UPPER RESPIRATORY TRACT INFECTION
     Dosage: UNK
     Route: 065

REACTIONS (10)
  - Hepatic enzyme increased [Unknown]
  - Erythema [Recovered/Resolved]
  - Pyrexia [Unknown]
  - Dermatitis bullous [Recovered/Resolved]
  - Drug reaction with eosinophilia and systemic symptoms [Recovered/Resolved]
  - Acquired epidermolysis bullosa [Recovered/Resolved]
  - Eosinophilia [Recovered/Resolved]
  - Drug effect increased [Unknown]
  - Drug cross-reactivity [Unknown]
  - Red man syndrome [Unknown]
